FAERS Safety Report 7067151-7 (Version None)
Quarter: 2010Q4

REPORT INFORMATION
  Report Type: 
  Country: None (occurrence: None)
  Receive Date: 20101028
  Receipt Date: 20101019
  Transmission Date: 20110411
  Serious: No
  Sender: FDA-Public Use
  Company Number: US-BIOGENIDEC-2010BI037001

PATIENT
  Sex: Female

DRUGS (2)
  1. TYSABRI [Suspect]
     Indication: MULTIPLE SCLEROSIS
     Route: 042
     Dates: start: 20060111, end: 20070116
  2. TYSABRI [Suspect]
     Route: 042
     Dates: start: 20080109, end: 20100729

REACTIONS (1)
  - JC VIRUS TEST POSITIVE [None]
